FAERS Safety Report 6643040-4 (Version None)
Quarter: 2010Q1

REPORT INFORMATION
  Report Type: 
  Country: None (occurrence: None)
  Receive Date: 20100319
  Receipt Date: 20100310
  Transmission Date: 20100710
  Serious: Yes (Hospitalization)
  Sender: FDA-Public Use
  Company Number: B0641352A

PATIENT
  Age: 41 Year
  Sex: Male

DRUGS (1)
  1. ZINADOL [Suspect]
     Dosage: 500MG TWICE PER DAY
     Route: 048
     Dates: start: 20091017, end: 20091017

REACTIONS (2)
  - ANAPHYLACTIC SHOCK [None]
  - ARTERIOSPASM CORONARY [None]
